FAERS Safety Report 19180687 (Version 1)
Quarter: 2021Q2

REPORT INFORMATION
  Report Type: Spontaneous
  Country: US (occurrence: US)
  Receive Date: 20210426
  Receipt Date: 20210426
  Transmission Date: 20210717
  Serious: Yes (Disabling)
  Sender: FDA-Public Use
  Company Number: None

PATIENT
  Age: 34 Year
  Sex: Female
  Weight: 59.85 kg

DRUGS (6)
  1. GUANFACINE HCL ER 2MG TABLET [Suspect]
     Active Substance: GUANFACINE HYDROCHLORIDE
     Indication: BRAIN INJURY
     Dosage: ?          QUANTITY:90 TABLET(S);?
     Route: 048
     Dates: start: 20190111, end: 20210414
  2. QUETIAPINE FUMARATE. [Suspect]
     Active Substance: QUETIAPINE FUMARATE
  3. GUANFACINE HCL ER 2MG TABLET [Suspect]
     Active Substance: GUANFACINE HYDROCHLORIDE
     Indication: EPILEPSY
     Dosage: ?          QUANTITY:90 TABLET(S);?
     Route: 048
     Dates: start: 20190111, end: 20210414
  4. ATIVAN [Concomitant]
     Active Substance: LORAZEPAM
  5. VITAMIN D3 [Concomitant]
     Active Substance: CHOLECALCIFEROL
  6. NORVASC [Concomitant]
     Active Substance: AMLODIPINE BESYLATE

REACTIONS (10)
  - Epilepsy [None]
  - Recalled product [None]
  - Fatigue [None]
  - Skin discolouration [None]
  - Poor peripheral circulation [None]
  - Product tampering [None]
  - Hypersomnia [None]
  - Pain in extremity [None]
  - Brain injury [None]
  - Somnolence [None]

NARRATIVE: CASE EVENT DATE: 20210207
